FAERS Safety Report 6090915-3 (Version None)
Quarter: 2009Q1

REPORT INFORMATION
  Report Type: 
  Country: None (occurrence: None)
  Receive Date: 20090220
  Receipt Date: 20090128
  Transmission Date: 20090719
  Serious: Yes (Other)
  Sender: FDA-Public Use
  Company Number: 6048641

PATIENT
  Age: 54 Year
  Sex: Female

DRUGS (2)
  1. EUTHYROX (100 MICROGRAM, TABLET) (LEVOTHYROXINE SODIUM) [Suspect]
     Indication: HYPOTHYROIDISM
     Dosage: (2.25 DOSAGE FORMS,EVERY MORNING (MONDAY TO SATURDAY)) ORAL;  (1.5 DOSAGE FORMS,SUNDAY MORNING) ORAL
     Route: 048
     Dates: start: 20080701, end: 20090128
  2. EUTHYROX (100 MICROGRAM, TABLET) (LEVOTHYROXINE SODIUM) [Suspect]
     Indication: HYPOTHYROIDISM
     Dosage: (2.25 DOSAGE FORMS,EVERY MORNING (MONDAY TO SATURDAY)) ORAL;  (1.5 DOSAGE FORMS,SUNDAY MORNING) ORAL
     Route: 048
     Dates: start: 20080701, end: 20090128

REACTIONS (3)
  - BLOOD THYROID STIMULATING HORMONE INCREASED [None]
  - DRUG INEFFECTIVE [None]
  - TACHYCARDIA [None]
